FAERS Safety Report 4374229-5 (Version None)
Quarter: 2004Q2

REPORT INFORMATION
  Report Type: 
  Country: None (occurrence: None)
  Receive Date: 20040603
  Receipt Date: 20040514
  Transmission Date: 20050107
  Serious: Yes (Other)
  Sender: FDA-Public Use
  Company Number: EWC040539300

PATIENT
  Age: 67 Year
  Sex: Female
  Weight: 60 kg

DRUGS (6)
  1. EVISTA [Suspect]
     Indication: OSTEOPOROSIS
  2. RYTHMARONE (AMIODARONE HYDROCHLORIDE) [Concomitant]
  3. AMLOPIN (AMLODIPINE BESILATE) [Concomitant]
  4. MODURETIC 5-50 [Concomitant]
  5. FUROSEMIDE [Concomitant]
  6. OSTEOKOMPLEX [Concomitant]

REACTIONS (2)
  - BLOOD ALCOHOL INCREASED [None]
  - BLOOD FIBRINOGEN INCREASED [None]
